FAERS Safety Report 22377948 (Version 1)
Quarter: 2023Q2

REPORT INFORMATION
  Report Type: Spontaneous
  Country: IT (occurrence: IT)
  Receive Date: 20230529
  Receipt Date: 20230529
  Transmission Date: 20230721
  Serious: Yes (Other)
  Sender: FDA-Public Use
  Company Number: None

PATIENT
  Age: 63 Year
  Sex: Male

DRUGS (2)
  1. AMOXICILLIN\CLAVULANIC ACID [Suspect]
     Active Substance: AMOXICILLIN\CLAVULANIC ACID
     Indication: Abscess
     Dosage: 1 ANTIBIOTIC DOSE (DO NOT KNOW THE BRAND, DO NOT KNOW IF GRANULES OR CPR)    ,AMOXICILLINA/ACIDO CL
     Dates: start: 20230502, end: 20230503
  2. RAMIPRIL [Concomitant]
     Active Substance: RAMIPRIL
     Indication: Hypertension
     Dosage: ND
     Route: 065

REACTIONS (2)
  - Periorbital oedema [Recovering/Resolving]
  - Eye pruritus [Recovering/Resolving]

NARRATIVE: CASE EVENT DATE: 20230503
